FAERS Safety Report 11792524 (Version 1)
Quarter: 2015Q4

REPORT INFORMATION
  Report Type: Spontaneous
  Country: CH (occurrence: CH)
  Receive Date: 20151202
  Receipt Date: 20151202
  Transmission Date: 20160305
  Serious: Yes (Other)
  Sender: FDA-Public Use
  Company Number: PHHY2015CH087577

PATIENT
  Sex: Male

DRUGS (6)
  1. CLOPIN ECO [Interacting]
     Active Substance: CLOZAPINE
     Indication: SCHIZOPHRENIA
     Dosage: 150 MG (100 MG TABLET)
     Route: 065
     Dates: start: 201409
  2. CLOPIN ECO [Interacting]
     Active Substance: CLOZAPINE
     Dosage: 25 MG, QD
     Route: 065
  3. CLOPIN ECO [Interacting]
     Active Substance: CLOZAPINE
     Dosage: 100 MG
     Route: 065
     Dates: start: 201503
  4. TEMESTA [Concomitant]
     Active Substance: LORAZEPAM
     Indication: PRODUCT USED FOR UNKNOWN INDICATION
     Dosage: 1 MG, PRN
     Route: 065
  5. FLOXYFRAL [Interacting]
     Active Substance: FLUVOXAMINE
     Dosage: 50 MG, QD
     Route: 065
  6. HALDOL [Suspect]
     Active Substance: HALOPERIDOL
     Indication: PRODUCT USED FOR UNKNOWN INDICATION
     Dosage: 1 MG, PRN
     Route: 065

REACTIONS (4)
  - Antipsychotic drug level above therapeutic [Not Recovered/Not Resolved]
  - Delusion [Unknown]
  - Drug interaction [Not Recovered/Not Resolved]
  - Somnolence [Not Recovered/Not Resolved]
